FAERS Safety Report 4774991-3 (Version None)
Quarter: 2005Q3

REPORT INFORMATION
  Report Type: 
  Country: None (occurrence: None)
  Receive Date: 20050920
  Receipt Date: 20050908
  Transmission Date: 20060218
  Serious: Yes (Hospitalization, Other)
  Sender: FDA-Public Use
  Company Number: 2005118851

PATIENT
  Sex: Male

DRUGS (2)
  1. CABERGOLINE [Suspect]
     Indication: PARKINSON'S DISEASE
     Dosage: ORAL
     Route: 048
     Dates: end: 20050801
  2. MADOPAR (BENSERAZIDE HYDROCHLORIDE, LEVODOPA) [Concomitant]

REACTIONS (31)
  - ALANINE AMINOTRANSFERASE INCREASED [None]
  - ALVEOLITIS [None]
  - ANAEMIA [None]
  - AORTIC VALVE INCOMPETENCE [None]
  - ARTERIAL FIBROSIS [None]
  - ASPARTATE AMINOTRANSFERASE INCREASED [None]
  - BLOOD CREATINE PHOSPHOKINASE INCREASED [None]
  - BLOOD LACTATE DEHYDROGENASE INCREASED [None]
  - BRONCHIAL OBSTRUCTION [None]
  - C-REACTIVE PROTEIN INCREASED [None]
  - CARDIAC DISORDER [None]
  - COUGH [None]
  - GAMMA-GLUTAMYLTRANSFERASE INCREASED [None]
  - HAEMOPTYSIS [None]
  - LUNG INFILTRATION [None]
  - LYMPHANGIOPATHY [None]
  - MITRAL VALVE INCOMPETENCE [None]
  - PERICARDIAL EFFUSION [None]
  - PLEURAL EFFUSION [None]
  - PLEURISY [None]
  - PO2 DECREASED [None]
  - PULMONARY ALVEOLAR HAEMORRHAGE [None]
  - PULMONARY ARTERY THROMBOSIS [None]
  - PULMONARY ARTERY WALL HYPERTROPHY [None]
  - PULMONARY FIBROSIS [None]
  - PYOTHORAX [None]
  - RESTRICTIVE PULMONARY DISEASE [None]
  - THERAPY NON-RESPONDER [None]
  - URINARY RETENTION [None]
  - VASCULITIS [None]
  - VASODILATATION [None]
